FAERS Safety Report 19474073 (Version 3)
Quarter: 2021Q3

REPORT INFORMATION
  Report Type: Report from Study
  Country: None (occurrence: US)
  Receive Date: 20210629
  Receipt Date: 20210730
  Transmission Date: 20211014
  Serious: Yes (Other)
  Sender: FDA-Public Use
  Company Number: US-ABBVIE-21K-163-3967660-00

PATIENT
  Sex: Female
  Weight: 55.39 kg

DRUGS (13)
  1. CELEBREX [Suspect]
     Active Substance: CELECOXIB
     Indication: PRODUCT USED FOR UNKNOWN INDICATION
     Route: 065
  2. MODERNA COVID?19 VACCINE [Concomitant]
     Active Substance: CX-024414
     Route: 030
     Dates: start: 202103, end: 202103
  3. HUMIRA [Suspect]
     Active Substance: ADALIMUMAB
     Indication: UVEITIS
     Route: 058
     Dates: start: 2019, end: 202101
  4. DICYCLOMINE [Concomitant]
     Active Substance: DICYCLOMINE HYDROCHLORIDE
     Indication: IRRITABLE BOWEL SYNDROME
  5. MODERNA COVID?19 VACCINE [Concomitant]
     Active Substance: CX-024414
     Indication: COVID-19 IMMUNISATION
     Route: 030
     Dates: start: 202103, end: 202103
  6. DILTIAZEM. [Concomitant]
     Active Substance: DILTIAZEM
     Indication: HYPERTENSION
  7. IBUPROFEN. [Suspect]
     Active Substance: IBUPROFEN
     Indication: PRODUCT USED FOR UNKNOWN INDICATION
     Route: 065
  8. OMEPRAZOLE. [Concomitant]
     Active Substance: OMEPRAZOLE
     Indication: HYPERCHLORHYDRIA
  9. HUMIRA [Suspect]
     Active Substance: ADALIMUMAB
     Dosage: CF
     Route: 058
     Dates: start: 202104
  10. HYDROXYCHLOROQUINE [Concomitant]
     Active Substance: HYDROXYCHLOROQUINE
     Indication: PRODUCT USED FOR UNKNOWN INDICATION
  11. FERROUS SULFATE. [Concomitant]
     Active Substance: FERROUS SULFATE
     Indication: ANAEMIA
  12. PREDNISONE. [Suspect]
     Active Substance: PREDNISONE
     Indication: INFLAMMATION
     Route: 065
  13. BYSTOLIC [Concomitant]
     Active Substance: NEBIVOLOL HYDROCHLORIDE
     Indication: HYPERTENSION

REACTIONS (34)
  - Pain in extremity [Not Recovered/Not Resolved]
  - Daydreaming [Recovered/Resolved]
  - Onychomycosis [Not Recovered/Not Resolved]
  - Impaired self-care [Recovering/Resolving]
  - Skin induration [Not Recovered/Not Resolved]
  - Visual impairment [Recovered/Resolved]
  - Insomnia [Recovering/Resolving]
  - Anaemia [Not Recovered/Not Resolved]
  - Blindness [Not Recovered/Not Resolved]
  - Anxiety [Not Recovered/Not Resolved]
  - Drug hypersensitivity [Not Recovered/Not Resolved]
  - Noninfective encephalitis [Recovered/Resolved]
  - Uveitis [Not Recovered/Not Resolved]
  - Weight decreased [Recovered/Resolved]
  - Irritable bowel syndrome [Unknown]
  - White blood cell disorder [Recovered/Resolved]
  - Injury [Not Recovered/Not Resolved]
  - Psychotic disorder [Recovered/Resolved]
  - Gastric ulcer [Unknown]
  - Gout [Recovering/Resolving]
  - Psychotic disorder [Recovering/Resolving]
  - Plantar fasciitis [Recovering/Resolving]
  - Diverticulitis [Unknown]
  - COVID-19 [Recovered/Resolved]
  - Aphasia [Recovering/Resolving]
  - Back pain [Unknown]
  - Weight decreased [Not Recovered/Not Resolved]
  - Inflammatory marker increased [Not Recovered/Not Resolved]
  - Arthritis [Recovering/Resolving]
  - Gait inability [Recovering/Resolving]
  - Pain in extremity [Not Recovered/Not Resolved]
  - Cystitis [Recovered/Resolved]
  - Hallucination, auditory [Recovered/Resolved]
  - Gastrointestinal disorder [Recovering/Resolving]

NARRATIVE: CASE EVENT DATE: 2020
